FAERS Safety Report 10482624 (Version 1)
Quarter: 2014Q3

REPORT INFORMATION
  Report Type: Spontaneous
  Country: US (occurrence: US)
  Receive Date: 20140929
  Receipt Date: 20140929
  Transmission Date: 20150326
  Serious: No
  Sender: FDA-Public Use
  Company Number: US-GILEAD-2014-0116444

PATIENT
  Age: 64 Year
  Sex: Female

DRUGS (1)
  1. LETAIRIS [Suspect]
     Active Substance: AMBRISENTAN
     Indication: PULMONARY HYPERTENSION
     Dates: start: 20140827

REACTIONS (5)
  - Dry mouth [Unknown]
  - Unevaluable event [Unknown]
  - Nausea [Unknown]
  - Vomiting [Unknown]
  - Joint swelling [Unknown]

NARRATIVE: CASE EVENT DATE: 20140828
